FAERS Safety Report 18488374 (Version 1)
Quarter: 2020Q4

REPORT INFORMATION
  Report Type: Spontaneous
  Country: US (occurrence: US)
  Receive Date: 20201111
  Receipt Date: 20201111
  Transmission Date: 20210114
  Serious: No
  Sender: FDA-Public Use
  Company Number: US-SA-2020SA314201

PATIENT

DRUGS (1)
  1. SARCLISA [Suspect]
     Active Substance: ISATUXIMAB-IRFC
     Dosage: 5TH LINE THERAPY, INFUSION, UNK

REACTIONS (3)
  - Nephropathy toxic [Unknown]
  - Therapy interrupted [Unknown]
  - Blood creatinine increased [Unknown]
